FAERS Safety Report 8828915 (Version 1)
Quarter: 2012Q4

REPORT INFORMATION
  Report Type: 
  Country: US (occurrence: US)
  Receive Date: 20121008
  Receipt Date: 20121008
  Transmission Date: 20130627
  Serious: No
  Sender: FDA-Public Use
  Company Number: US-TEVA-357507USA

PATIENT
  Sex: Female

DRUGS (2)
  1. PROAIR HFA [Suspect]
     Indication: ASTHMA
  2. QVAR [Concomitant]

REACTIONS (3)
  - Dyspnoea [Unknown]
  - Malaise [Unknown]
  - Asthma [Unknown]
